FAERS Safety Report 9198336 (Version 1)
Quarter: 2013Q1

REPORT INFORMATION
  Report Type: Spontaneous
  Country: US (occurrence: None)
  Receive Date: 20120709
  Receipt Date: 20120709
  Transmission Date: 20140127
  Serious: Yes (Other)
  Sender: FDA-Public Use
  Company Number: PHEH2011US010655

PATIENT
  Age: 67 Year
  Sex: Male

DRUGS (5)
  1. GLEEVEC (IMATINIB) UNKNOWN [Suspect]
     Indication: CHRONIC MYELOID LEUKAEMIA
     Route: 048
  2. LUMIGAN (BIMATOPROST) [Concomitant]
  3. AMLODIPINE (AMLODIPINE) [Concomitant]
  4. LOVASTATIN (LOVASTATIN) [Concomitant]
  5. CLOBETASOL (CLOBETASOL) [Concomitant]

REACTIONS (3)
  - Anaemia [None]
  - Impaired healing [None]
  - Rash [None]
